FAERS Safety Report 25397172 (Version 1)
Quarter: 2025Q2

REPORT INFORMATION
  Report Type: Spontaneous
  Country: JP (occurrence: JP)
  Receive Date: 20250604
  Receipt Date: 20250604
  Transmission Date: 20250716
  Serious: Yes (Hospitalization)
  Sender: Alora Pharma
  Company Number: JP-ACELLA PHARMACEUTICALS, LLC-2025ALO02240

PATIENT
  Age: 14 Year
  Sex: Female

DRUGS (24)
  1. DEXTROMETHORPHAN [Suspect]
     Active Substance: DEXTROMETHORPHAN
  2. DEXTROMETHORPHAN [Suspect]
     Active Substance: DEXTROMETHORPHAN
  3. DEXTROMETHORPHAN [Suspect]
     Active Substance: DEXTROMETHORPHAN
  4. DEXTROMETHORPHAN [Suspect]
     Active Substance: DEXTROMETHORPHAN
  5. DEXTROMETHORPHAN [Suspect]
     Active Substance: DEXTROMETHORPHAN
  6. DEXTROMETHORPHAN [Suspect]
     Active Substance: DEXTROMETHORPHAN
  7. TRANEXAMIC ACID [Concomitant]
     Active Substance: TRANEXAMIC ACID
  8. TRANEXAMIC ACID [Concomitant]
     Active Substance: TRANEXAMIC ACID
  9. TRANEXAMIC ACID [Concomitant]
     Active Substance: TRANEXAMIC ACID
  10. TRANEXAMIC ACID [Concomitant]
     Active Substance: TRANEXAMIC ACID
  11. TRANEXAMIC ACID [Concomitant]
     Active Substance: TRANEXAMIC ACID
  12. TRANEXAMIC ACID [Concomitant]
     Active Substance: TRANEXAMIC ACID
  13. CEFCAPENE PIVOXIL HYDROCHLORIDE HYDRATE [Concomitant]
     Active Substance: CEFCAPENE PIVOXIL HYDROCHLORIDE HYDRATE
  14. CEFCAPENE PIVOXIL HYDROCHLORIDE HYDRATE [Concomitant]
     Active Substance: CEFCAPENE PIVOXIL HYDROCHLORIDE HYDRATE
  15. CEFCAPENE PIVOXIL HYDROCHLORIDE HYDRATE [Concomitant]
     Active Substance: CEFCAPENE PIVOXIL HYDROCHLORIDE HYDRATE
  16. CEFCAPENE PIVOXIL HYDROCHLORIDE HYDRATE [Concomitant]
     Active Substance: CEFCAPENE PIVOXIL HYDROCHLORIDE HYDRATE
  17. CEFCAPENE PIVOXIL HYDROCHLORIDE HYDRATE [Concomitant]
     Active Substance: CEFCAPENE PIVOXIL HYDROCHLORIDE HYDRATE
  18. CEFCAPENE PIVOXIL HYDROCHLORIDE HYDRATE [Concomitant]
     Active Substance: CEFCAPENE PIVOXIL HYDROCHLORIDE HYDRATE
  19. LOXOPROFEN [Concomitant]
     Active Substance: LOXOPROFEN
  20. LOXOPROFEN [Concomitant]
     Active Substance: LOXOPROFEN
  21. LOXOPROFEN [Concomitant]
     Active Substance: LOXOPROFEN
  22. LOXOPROFEN [Concomitant]
     Active Substance: LOXOPROFEN
  23. LOXOPROFEN [Concomitant]
     Active Substance: LOXOPROFEN
  24. LOXOPROFEN [Concomitant]
     Active Substance: LOXOPROFEN

REACTIONS (2)
  - Anaphylactic shock [Recovered/Resolved]
  - Hypersensitivity [Recovered/Resolved]
